FAERS Safety Report 19017742 (Version 1)
Quarter: 2021Q1

REPORT INFORMATION
  Report Type: Spontaneous
  Country: US (occurrence: US)
  Receive Date: 20210316
  Receipt Date: 20210316
  Transmission Date: 20210420
  Serious: Yes (Other)
  Sender: FDA-Public Use
  Company Number: None

PATIENT
  Age: 26 Year
  Sex: Male
  Weight: 60.75 kg

DRUGS (4)
  1. REFRESH [Concomitant]
     Active Substance: UNSPECIFIED INGREDIENT
  2. ACETAMINOPHEN. [Concomitant]
     Active Substance: ACETAMINOPHEN
  3. XIIDRA [Suspect]
     Active Substance: LIFITEGRAST
     Indication: DRY EYE
     Dosage: ?          QUANTITY:1 DROP(S);OTHER ROUTE:EYE DROP?
     Route: 047
     Dates: start: 20210305, end: 20210312
  4. IBUPROFEN. [Concomitant]
     Active Substance: IBUPROFEN

REACTIONS (8)
  - Drug ineffective [None]
  - Productive cough [None]
  - Oropharyngeal discomfort [None]
  - Visual impairment [None]
  - Eye pain [None]
  - Sinusitis [None]
  - Migraine [None]
  - Vision blurred [None]

NARRATIVE: CASE EVENT DATE: 20210315
